FAERS Safety Report 7901959-8 (Version None)
Quarter: 2011Q4

REPORT INFORMATION
  Report Type: 
  Country: None (occurrence: None)
  Receive Date: 20111108
  Receipt Date: 20111030
  Transmission Date: 20120403
  Serious: Yes (Hospitalization)
  Sender: FDA-Public Use
  Company Number: NZ-B.I. PHARMACEUTICALS,INC./RIDGEFIELD-2011-EU-00121AU

PATIENT
  Sex: Female

DRUGS (5)
  1. FUROSEMIDE [Concomitant]
     Indication: RIGHT VENTRICULAR FAILURE
     Dosage: 60 MG
     Route: 048
     Dates: start: 20110512
  2. CEPHALEXIN [Concomitant]
     Indication: CELLULITIS
     Dosage: 1 G
     Route: 048
     Dates: start: 20110920
  3. DICLOFENAC SODIUM [Concomitant]
     Route: 048
     Dates: start: 20110920
  4. CHOLECALCIFEROL [Concomitant]
     Dosage: 1.25 MG
     Route: 048
     Dates: start: 20110425
  5. DABIGATRAN [Suspect]
     Indication: ATRIAL FIBRILLATION
     Dosage: 220 MG
     Route: 048
     Dates: start: 20110712, end: 20110924

REACTIONS (3)
  - VOMITING [None]
  - HAEMATEMESIS [None]
  - MELAENA [None]
